FAERS Safety Report 11836436 (Version 1)
Quarter: 2015Q4

REPORT INFORMATION
  Report Type: Spontaneous
  Country: US (occurrence: None)
  Receive Date: 20151214
  Receipt Date: 20151214
  Transmission Date: 20160305
  Serious: Yes (Life-Threatening, Hospitalization, Other)
  Sender: FDA-Public Use
  Company Number: None

PATIENT
  Age: 40 Year
  Sex: Female

DRUGS (3)
  1. VENOFER [Suspect]
     Active Substance: IRON SUCROSE
     Indication: BLOOD IRON DECREASED
     Route: 042
     Dates: start: 20151210, end: 20151210
  2. HUMALOG [Concomitant]
     Active Substance: INSULIN LISPRO
  3. IRON [Concomitant]
     Active Substance: IRON

REACTIONS (5)
  - Anxiety [None]
  - Skin discolouration [None]
  - Chest pain [None]
  - Joint swelling [None]
  - Infusion site reaction [None]

NARRATIVE: CASE EVENT DATE: 20151210
